FAERS Safety Report 8129380-0 (Version None)
Quarter: 2012Q1

REPORT INFORMATION
  Report Type: 
  Country: None (occurrence: None)
  Receive Date: 20120210
  Receipt Date: 20120120
  Transmission Date: 20120608
  Serious: Yes (Hospitalization)
  Sender: FDA-Public Use
  Company Number: IT-ASTRAZENECA-2012SE02796

PATIENT
  Age: 49 Year
  Sex: Male

DRUGS (1)
  1. OMEPRAZOLE [Suspect]
     Indication: GASTROINTESTINAL DISORDER
     Route: 048
     Dates: start: 20060101, end: 20111214

REACTIONS (4)
  - RED BLOOD CELL COUNT DECREASED [None]
  - WHITE BLOOD CELL DISORDER [None]
  - THROMBOCYTOPENIA [None]
  - LEUKAEMIA [None]
